FAERS Safety Report 23242799 (Version 1)
Quarter: 2023Q4

REPORT INFORMATION
  Report Type: Spontaneous
  Country: IT (occurrence: IT)
  Receive Date: 20231129
  Receipt Date: 20231129
  Transmission Date: 20240109
  Serious: Yes (Death, Other)
  Sender: FDA-Public Use
  Company Number: None

PATIENT
  Age: 71 Year
  Sex: Male

DRUGS (7)
  1. BORTEZOMIB [Suspect]
     Active Substance: BORTEZOMIB
     Indication: Plasma cell myeloma
     Dosage: UNKUNK
     Route: 065
  2. BENDAMUSTINE HYDROCHLORIDE [Suspect]
     Active Substance: BENDAMUSTINE HYDROCHLORIDE
     Indication: Plasma cell myeloma
     Dosage: UNK
     Route: 065
  3. DOXORUBICIN [Suspect]
     Active Substance: DOXORUBICIN
     Indication: Plasma cell myeloma
     Dosage: UNKUNK
     Route: 065
  4. DEXAMETHASONE [Suspect]
     Active Substance: DEXAMETHASONE
     Dosage: UNK
     Route: 065
     Dates: start: 201709
  5. DEXAMETHASONE [Suspect]
     Active Substance: DEXAMETHASONE
     Indication: Plasma cell myeloma
     Dosage: UNKUNK
     Route: 065
     Dates: start: 201811
  6. LENALIDOMIDE [Suspect]
     Active Substance: LENALIDOMIDE
     Indication: Plasma cell myeloma
     Dosage: UNKUNK
     Route: 065
     Dates: start: 201709
  7. LENALIDOMIDE [Suspect]
     Active Substance: LENALIDOMIDE
     Dosage: UNKUNK
     Route: 065
     Dates: start: 201811

REACTIONS (5)
  - Condition aggravated [Fatal]
  - Therapy non-responder [Fatal]
  - Multiple organ dysfunction syndrome [Fatal]
  - Plasma cell myeloma [Fatal]
  - Drug ineffective [Fatal]

NARRATIVE: CASE EVENT DATE: 20190301
